FAERS Safety Report 6846116-1 (Version None)
Quarter: 2010Q3

REPORT INFORMATION
  Report Type: 
  Country: None (occurrence: None)
  Receive Date: 20100715
  Receipt Date: 20080119
  Transmission Date: 20110219
  Serious: No
  Sender: FDA-Public Use
  Company Number: US-PFIZER INC-2007074313

PATIENT
  Sex: Male

DRUGS (4)
  1. CHANTIX [Suspect]
     Indication: SMOKING CESSATION THERAPY
     Route: 048
     Dates: start: 20070801, end: 20070801
  2. VYTORIN [Concomitant]
     Indication: BLOOD CHOLESTEROL ABNORMAL
  3. TRICOR [Concomitant]
     Indication: BLOOD CHOLESTEROL ABNORMAL
  4. CARDIOVASCULAR SYSTEM DRUGS [Concomitant]
     Indication: CARDIOVASCULAR DISORDER

REACTIONS (3)
  - ABNORMAL DREAMS [None]
  - MALAISE [None]
  - NAUSEA [None]
